FAERS Safety Report 13441034 (Version 6)
Quarter: 2017Q3

REPORT INFORMATION
  Report Type: Report from Study
  Country: FI (occurrence: FI)
  Receive Date: 20170413
  Receipt Date: 20170721
  Transmission Date: 20171127
  Serious: Yes (Hospitalization)
  Sender: FDA-Public Use
  Company Number: FI-ROCHE-1911434

PATIENT
  Age: 55 Year
  Sex: Female
  Weight: 89.1 kg

DRUGS (26)
  1. FISH OIL [Concomitant]
     Active Substance: FISH OIL
     Route: 065
     Dates: start: 1990
  2. IMOVANE [Concomitant]
     Active Substance: ZOPICLONE
     Indication: INSOMNIA
     Route: 065
     Dates: start: 20130115
  3. OCRELIZUMAB. [Suspect]
     Active Substance: OCRELIZUMAB
     Indication: PRIMARY PROGRESSIVE MULTIPLE SCLEROSIS
     Dosage: LAST DOSE PRIOR TO AE ONSET 10/NOV/2016?SUBSEQUENTLY RECENT DOSE WAS ON 05/MAY/2017 (520 ML)
     Route: 042
     Dates: start: 20151201
  4. SIRDALUD [Concomitant]
     Active Substance: TIZANIDINE
     Indication: MUSCLE SPASTICITY
     Route: 065
     Dates: start: 2008, end: 201506
  5. TAVANIC [Concomitant]
     Active Substance: LEVOFLOXACIN
     Route: 065
     Dates: end: 20170406
  6. METHYLPREDNISOLONE. [Concomitant]
     Active Substance: METHYLPREDNISOLONE
     Dosage: PREMEDICATION?MOST RECENT DOSE WAS ON 10/NOV/2016
     Route: 065
     Dates: start: 20111011, end: 20140722
  7. BURANA [Concomitant]
     Active Substance: IBUPROFEN
     Indication: INFLUENZA LIKE ILLNESS
     Route: 065
     Dates: start: 20131110, end: 20131116
  8. BURANA [Concomitant]
     Active Substance: IBUPROFEN
     Indication: MUSCULOSKELETAL CHEST PAIN
     Route: 065
     Dates: start: 20130409, end: 20130415
  9. BURANA [Concomitant]
     Active Substance: IBUPROFEN
     Indication: HYPERAESTHESIA
     Route: 065
     Dates: start: 20140212, end: 20140212
  10. BURANA [Concomitant]
     Active Substance: IBUPROFEN
     Indication: UPPER RESPIRATORY TRACT INFECTION
     Route: 065
     Dates: start: 20160127, end: 20160205
  11. FEMOSTON [Concomitant]
     Active Substance: DYDROGESTERONE\ESTRADIOL
     Indication: MENOPAUSAL SYMPTOMS
     Dosage: 2/10 X1 DAILY
     Route: 065
     Dates: start: 20130415
  12. PARACETAMOL [Concomitant]
     Active Substance: ACETAMINOPHEN
     Dosage: PREMEDICATION?MOST RECENT DOSE ON 31/MAY/2016
     Route: 065
     Dates: start: 20111011
  13. TRIMOPAN (FINLAND) [Concomitant]
     Indication: URINARY TRACT INFECTION
     Route: 065
     Dates: start: 20130225, end: 20130301
  14. TRIPTYL [Concomitant]
     Active Substance: AMITRIPTYLINE HYDROCHLORIDE
     Indication: PAIN IN EXTREMITY
     Route: 065
     Dates: start: 2010, end: 20170406
  15. ZITHROMAX [Concomitant]
     Active Substance: AZITHROMYCIN DIHYDRATE
     Indication: INFLUENZA LIKE ILLNESS
     Route: 065
     Dates: start: 20131114, end: 20131116
  16. HISTEC [Concomitant]
     Active Substance: CETIRIZINE HYDROCHLORIDE
     Dosage: PREMEDICATION?MOST RECENT DOSE BEFORE EVENT ONSET WAS ON 10/NOV/2016?SUBSEQUENTLY RECENT DOSE WAS ON
     Route: 065
     Dates: start: 20111011
  17. METHYLPREDNISOLONE. [Concomitant]
     Active Substance: METHYLPREDNISOLONE
     Dosage: PREMEDICATION?SUBSEQUENTLY RECENT DOSE WAS ON 05/MAY/2017
     Route: 065
     Dates: start: 20140805
  18. TROMBOCIL [Concomitant]
     Indication: PHLEBITIS INFECTIVE
     Route: 065
     Dates: start: 20141024, end: 20141030
  19. ZITHROMAX [Concomitant]
     Active Substance: AZITHROMYCIN DIHYDRATE
     Indication: BRONCHITIS
     Route: 065
     Dates: start: 20120720, end: 20120722
  20. PANADOL (FINLAND) [Concomitant]
     Dosage: PREMEDICATION?2 DOSES, 26/AUG/2013 AND 29/DEC/2014
     Route: 065
     Dates: start: 20130826, end: 20141229
  21. HEINIX [Concomitant]
     Active Substance: CETIRIZINE HYDROCHLORIDE
     Indication: ERYTHEMA
     Route: 065
     Dates: start: 20130813, end: 20130813
  22. IBUPROFEN. [Concomitant]
     Active Substance: IBUPROFEN
     Indication: PAIN IN EXTREMITY
     Route: 065
     Dates: start: 2008
  23. PLACEBO [Suspect]
     Active Substance: UNSPECIFIED INGREDIENT
     Indication: PRIMARY PROGRESSIVE MULTIPLE SCLEROSIS
     Route: 042
     Dates: start: 20111011, end: 20151130
  24. SIRDALUD [Concomitant]
     Active Substance: TIZANIDINE
     Dosage: ONGOING
     Route: 065
     Dates: start: 201506
  25. PARACETAMOL [Concomitant]
     Active Substance: ACETAMINOPHEN
     Route: 065
     Dates: start: 20170505
  26. LAMISIL [Concomitant]
     Active Substance: TERBINAFINE HYDROCHLORIDE
     Indication: FUNGAL SKIN INFECTION
     Route: 065
     Dates: start: 20150807, end: 20150807

REACTIONS (1)
  - Urosepsis [Recovered/Resolved]

NARRATIVE: CASE EVENT DATE: 20170320
